FAERS Safety Report 8904570 (Version 1)
Quarter: 2012Q4

REPORT INFORMATION
  Report Type: 
  Country: US (occurrence: US)
  Receive Date: 20121113
  Receipt Date: 20121113
  Transmission Date: 20130627
  Serious: Yes (Other)
  Sender: FDA-Public Use
  Company Number: US-ELI_LILLY_AND_COMPANY-US201211001354

PATIENT
  Sex: Male
  Weight: 136.5 kg

DRUGS (3)
  1. FLUOXETINE HYDROCHLORIDE [Suspect]
     Indication: BIPOLAR I DISORDER
     Dosage: 10 mg, unknown
     Dates: start: 200512, end: 200904
  2. FLUOXETINE HYDROCHLORIDE [Suspect]
     Dosage: 20 mg, unknown
  3. LITHIUM [Concomitant]
     Indication: BIPOLAR I DISORDER
     Dosage: 1 DF, unknown

REACTIONS (8)
  - Hepatic function abnormal [Unknown]
  - Gastrointestinal haemorrhage [Recovered/Resolved]
  - Muscle spasms [Recovering/Resolving]
  - Arthralgia [Recovered/Resolved]
  - Swelling [Recovering/Resolving]
  - Gait disturbance [Recovering/Resolving]
  - Pain [Recovered/Resolved]
  - Drug ineffective [Unknown]
